FAERS Safety Report 20046970 (Version 2)
Quarter: 2021Q4

REPORT INFORMATION
  Report Type: Spontaneous
  Country: AU (occurrence: AU)
  Receive Date: 20211109
  Receipt Date: 20211130
  Transmission Date: 20220303
  Serious: Yes (Other)
  Sender: FDA-Public Use
  Company Number: AU-BAUSCH-BL-2021-036726

PATIENT
  Sex: Male

DRUGS (7)
  1. PREDNISOLONE [Suspect]
     Active Substance: PREDNISOLONE
     Indication: Chronic graft versus host disease
     Dosage: INTERVAL: 1 DAY, ROUTE OF ADMINISTRATION: INFORMATION NOT PROVIDED BY SPONSOR
     Route: 065
  2. MYCOPHENOLATE MOFETIL [Suspect]
     Active Substance: MYCOPHENOLATE MOFETIL
     Indication: Chronic graft versus host disease
     Dosage: INTERVAL: 1 DAY, ROUTE OF ADMINISTRATION: INFORMATION NOT PROVIDED BY SPONSOR
     Route: 065
  3. POSACONAZOLE [Suspect]
     Active Substance: POSACONAZOLE
     Indication: Chronic graft versus host disease
     Dosage: DOSE OF 300 MG (CYP3A4 STRONG INHIBITORS), INTERVAL:1 DAY ROUTE: INFORMATION NOT PROVIDED BY SPONSOR
     Route: 065
  4. POSACONAZOLE [Suspect]
     Active Substance: POSACONAZOLE
     Dosage: DOSE OF 300 MG (CYP2C9 AND CYP3A4 INHIBITORS)
     Route: 065
  5. POSACONAZOLE [Suspect]
     Active Substance: POSACONAZOLE
     Dosage: DOSE OF 300 MG OTHER (DAILY)
     Route: 065
  6. CYCLOSPORINE [Suspect]
     Active Substance: CYCLOSPORINE
     Indication: Chronic graft versus host disease
     Dosage: INTERVAL: 1 DAY, ROUTE OF ADMINISTRATION: INFORMATION NOT PROVIDED BY SPONSOR
     Route: 065
  7. IBRUTINIB [Suspect]
     Active Substance: IBRUTINIB
     Indication: Chronic graft versus host disease
     Dosage: INTERVAL: 1 DAY, ROUTE OF ADMINISTRATION: INFORMATION NOT PROVIDED BY SPONSOR
     Route: 065

REACTIONS (14)
  - Chronic graft versus host disease [Unknown]
  - Chronic graft versus host disease in eye [Unknown]
  - Chronic graft versus host disease in liver [Unknown]
  - Chronic graft versus host disease in skin [Unknown]
  - Condition aggravated [Unknown]
  - Haemorrhage [Unknown]
  - Cataract [Unknown]
  - Glaucoma [Unknown]
  - Mobility decreased [Unknown]
  - Myositis [Unknown]
  - Osteoporosis [Unknown]
  - Pain [Unknown]
  - Tendonitis [Unknown]
  - Toxicity to various agents [Unknown]
